FAERS Safety Report 7069008-4 (Version None)
Quarter: 2010Q4

REPORT INFORMATION
  Report Type: 
  Country: None (occurrence: None)
  Receive Date: 20101028
  Receipt Date: 20101019
  Transmission Date: 20110411
  Serious: Yes (Life-Threatening, Other)
  Sender: FDA-Public Use
  Company Number: ES-PURDUE-GBR-2010-0007220

PATIENT
  Age: 52 Year
  Sex: Male

DRUGS (6)
  1. MST 10 CONTINUS, COMPRIMIDOS DE 10 MG [Suspect]
     Indication: PAIN
     Dosage: 10 MG TWO TIMES TWICE DAILY
     Route: 048
     Dates: start: 20090903, end: 20090904
  2. ENANTYUM [Concomitant]
     Indication: PAIN
     Dosage: 75 MG, TID
     Route: 048
     Dates: start: 20090202
  3. FERRO-GRADUMET                     /00023503/ [Concomitant]
     Indication: ANAEMIA
     Dosage: 1050 MG, BID
     Route: 048
  4. IDEOS [Concomitant]
     Indication: OSTEOPOROSIS
     Dosage: 1 UNK, DAILY
     Route: 048
     Dates: start: 20090730
  5. MAGNESIUM LACTATE [Concomitant]
     Indication: PRODUCT USED FOR UNKNOWN INDICATION
     Dosage: 1000 MG, TID
     Route: 048
     Dates: start: 20090820
  6. OPTOVITE B12 [Concomitant]
     Indication: NEOPLASM
     Dosage: 1000 MCG, DAILY
     Route: 030
     Dates: start: 20090730

REACTIONS (1)
  - INTESTINAL OBSTRUCTION [None]
